FAERS Safety Report 9982889 (Version 1)
Quarter: 2014Q1

REPORT INFORMATION
  Report Type: Spontaneous
  Country: US (occurrence: None)
  Receive Date: 20140130
  Receipt Date: 20140130
  Transmission Date: 20141002
  Serious: Yes (Hospitalization)
  Sender: FDA-Public Use
  Company Number: PHEH2013US025403

PATIENT
  Age: 75 Year
  Sex: Female

DRUGS (1)
  1. ARCAPTA [Suspect]
     Dosage: 1
     Dates: start: 20131105

REACTIONS (1)
  - Pneumonia [None]
